FAERS Safety Report 7145941-X (Version None)
Quarter: 2010Q4

REPORT INFORMATION
  Report Type: 
  Country: None (occurrence: None)
  Receive Date: 20101208
  Receipt Date: 20101012
  Transmission Date: 20110411
  Serious: No
  Sender: FDA-Public Use
  Company Number: US-ABBOTT-10P-163-0678299-00

PATIENT

DRUGS (2)
  1. E.E.S. [Suspect]
     Indication: EYE DISORDER
     Dosage: 2ML DAILY FOR SIX WEEKS
     Dates: start: 20100914, end: 20101012
  2. ALBUTEROL [Concomitant]
     Indication: PRODUCT USED FOR UNKNOWN INDICATION
     Dosage: NEBULIZER

REACTIONS (1)
  - DRUG ADMINISTRATION ERROR [None]
